FAERS Safety Report 21796563 (Version 2)
Quarter: 2023Q1

REPORT INFORMATION
  Report Type: Spontaneous
  Country: UZ (occurrence: UZ)
  Receive Date: 20221229
  Receipt Date: 20230127
  Transmission Date: 20230418
  Serious: Yes (Other)
  Sender: FDA-Public Use
  Company Number: UZ-JNJFOC-20221256701

PATIENT
  Age: 57 Year
  Sex: Female
  Weight: 69 kg

DRUGS (20)
  1. BEDAQUILINE [Suspect]
     Active Substance: BEDAQUILINE
     Indication: Pulmonary tuberculosis
     Dosage: MON, WED, FRI
     Route: 048
     Dates: start: 20221028, end: 20221110
  2. BEDAQUILINE [Suspect]
     Active Substance: BEDAQUILINE
     Indication: Tuberculosis
     Dosage: MON, WED, FRI, LAST DOSE WAS ON 18-DEC-2022
     Route: 048
     Dates: start: 20221110, end: 20221219
  3. BEDAQUILINE [Suspect]
     Active Substance: BEDAQUILINE
     Route: 048
     Dates: start: 20230104
  4. DELAMANID [Suspect]
     Active Substance: DELAMANID
     Indication: Pulmonary tuberculosis
     Route: 065
     Dates: start: 20221028, end: 20221117
  5. DELAMANID [Suspect]
     Active Substance: DELAMANID
     Indication: Tuberculosis
  6. LINEZOLID [Suspect]
     Active Substance: LINEZOLID
     Indication: Pulmonary tuberculosis
     Dosage: LAST DOSE WAS ON 18-DEC-2022
     Route: 065
     Dates: start: 20221028, end: 20221219
  7. LINEZOLID [Suspect]
     Active Substance: LINEZOLID
     Indication: Tuberculosis
     Route: 065
     Dates: start: 20221226
  8. CLOFAZIMINE [Suspect]
     Active Substance: CLOFAZIMINE
     Indication: Pulmonary tuberculosis
     Dosage: LAST DOSE WAS ON 18-DEC-2022
     Route: 065
     Dates: start: 20221028, end: 20221219
  9. CLOFAZIMINE [Suspect]
     Active Substance: CLOFAZIMINE
     Indication: Tuberculosis
     Route: 065
     Dates: start: 20221229
  10. AMOXICILLIN\CLAVULANIC ACID [Suspect]
     Active Substance: AMOXICILLIN\CLAVULANIC ACID
     Indication: Pulmonary tuberculosis
     Route: 065
     Dates: start: 20221028, end: 20221117
  11. AMOXICILLIN\CLAVULANIC ACID [Suspect]
     Active Substance: AMOXICILLIN\CLAVULANIC ACID
     Indication: Tuberculosis
  12. IMIPENEM [Suspect]
     Active Substance: IMIPENEM
     Indication: Pulmonary tuberculosis
     Route: 042
     Dates: start: 20221028, end: 20221117
  13. IMIPENEM [Suspect]
     Active Substance: IMIPENEM
     Indication: Tuberculosis
  14. PRETOMANID [Suspect]
     Active Substance: PRETOMANID
     Indication: Pulmonary tuberculosis
     Dosage: LAST DOSE WAS ON 18-DEC-2022
     Route: 065
     Dates: start: 20221118, end: 20221219
  15. PRETOMANID [Suspect]
     Active Substance: PRETOMANID
     Indication: Tuberculosis
     Route: 065
     Dates: start: 20230101
  16. MIRTAZAPINE [Suspect]
     Active Substance: MIRTAZAPINE
     Indication: Product used for unknown indication
     Dosage: LAST DOSE WAS ON 18-DEC-2022
     Route: 065
     Dates: start: 20221201, end: 20221219
  17. FERROUS FUMARATE [Concomitant]
     Active Substance: FERROUS FUMARATE
     Indication: Product used for unknown indication
     Route: 045
  18. DEXTROSE [Concomitant]
     Active Substance: DEXTROSE
     Indication: Product used for unknown indication
     Dosage: 40%, 10
     Route: 042
  19. SODIUM CHLORIDE [Concomitant]
     Active Substance: SODIUM CHLORIDE
     Indication: Product used for unknown indication
     Dosage: 0.9 % LINE NO: 3
     Route: 042
  20. PIRACETAM [Concomitant]
     Active Substance: PIRACETAM
     Indication: Product used for unknown indication
     Dosage: 20%, INTRAVENOUS NO 10
     Route: 042

REACTIONS (2)
  - Toxic skin eruption [Recovered/Resolved]
  - Off label use [Unknown]

NARRATIVE: CASE EVENT DATE: 20221028
